FAERS Safety Report 16389912 (Version 1)
Quarter: 2019Q2

REPORT INFORMATION
  Report Type: Report from Study
  Country: US (occurrence: US)
  Receive Date: 20190604
  Receipt Date: 20190604
  Transmission Date: 20190711
  Serious: Yes (Hospitalization)
  Sender: FDA-Public Use
  Company Number: US-MALLINCKRODT-T201903710

PATIENT
  Sex: Female

DRUGS (3)
  1. PREDNISONE. [Concomitant]
     Active Substance: PREDNISONE
     Dosage: 60 MG, UNK
     Route: 065
  2. PREDNISONE. [Concomitant]
     Active Substance: PREDNISONE
     Indication: PRODUCT USED FOR UNKNOWN INDICATION
     Dosage: 5 MG, UNK
     Route: 065
  3. REPOSITORY CORTICOTROPIN INJECTION [Suspect]
     Active Substance: CORTICOTROPIN
     Indication: PULMONARY SARCOIDOSIS
     Dosage: 80 UNITS / 1 ML EVERY 3 DAYS / EVERY 72 HOURS
     Route: 058
     Dates: start: 20190509

REACTIONS (6)
  - Respiratory disorder [Recovering/Resolving]
  - Hypersomnia [Unknown]
  - Cardiac failure congestive [Recovering/Resolving]
  - Blood potassium decreased [Recovering/Resolving]
  - Fatigue [Not Recovered/Not Resolved]
  - Laboratory test abnormal [Recovering/Resolving]
